FAERS Safety Report 26084223 (Version 1)
Quarter: 2025Q4

REPORT INFORMATION
  Report Type: Spontaneous
  Country: US (occurrence: None)
  Receive Date: 20251124
  Receipt Date: 20251124
  Transmission Date: 20260117
  Serious: No
  Sender: AMERICAN REGENT
  Company Number: US-AMERICAN REGENT INC-2024004497

PATIENT

DRUGS (1)
  1. VENOFER [Suspect]
     Active Substance: IRON SUCROSE
     Indication: Product used for unknown indication
     Dosage: UNK, SINGLE
     Dates: start: 2024, end: 2024

REACTIONS (2)
  - Infusion site pain [Unknown]
  - Infusion site discolouration [Unknown]

NARRATIVE: CASE EVENT DATE: 20240101
